FAERS Safety Report 8435663-7 (Version None)
Quarter: 2012Q2

REPORT INFORMATION
  Report Type: 
  Country: None (occurrence: None)
  Receive Date: 20120614
  Receipt Date: 20120608
  Transmission Date: 20120825
  Serious: Yes (Disabling, Other)
  Sender: FDA-Public Use
  Company Number: US-BAYER-2012-045111

PATIENT
  Age: 54 Year
  Sex: Male

DRUGS (4)
  1. MAGNEVIST [Suspect]
  2. GADOLINIUM IN UNSPECIFIED DRUG [Suspect]
     Indication: NUCLEAR MAGNETIC RESONANCE IMAGING ABDOMINAL
     Dosage: UNK
     Route: 042
     Dates: start: 20001212, end: 20001212
  3. OPTIMARK [Suspect]
  4. OMNISCAN [Suspect]

REACTIONS (10)
  - EMOTIONAL DISTRESS [None]
  - INJURY [None]
  - MOBILITY DECREASED [None]
  - MUSCULOSKELETAL STIFFNESS [None]
  - ABASIA [None]
  - FIBROSIS [None]
  - NEPHROGENIC SYSTEMIC FIBROSIS [None]
  - SKIN HYPERTROPHY [None]
  - PAIN [None]
  - OEDEMA PERIPHERAL [None]
